FAERS Safety Report 9753254 (Version 2)
Quarter: 2013Q4

REPORT INFORMATION
  Report Type: Spontaneous
  Country: US (occurrence: US)
  Receive Date: 20131213
  Receipt Date: 20131213
  Transmission Date: 20140711
  Serious: No
  Sender: FDA-Public Use
  Company Number: US-GILEAD-2010-0027633

PATIENT
  Sex: Male
  Weight: 125.64 kg

DRUGS (33)
  1. LETAIRIS [Suspect]
     Indication: PULMONARY ARTERIAL HYPERTENSION
     Route: 048
     Dates: start: 20090402
  2. VICODIN [Concomitant]
  3. VENTAVIS [Concomitant]
  4. LUMIGAN [Concomitant]
  5. LASIX [Concomitant]
  6. TYLENOL [Concomitant]
  7. NORVASC [Concomitant]
  8. REVATIO [Concomitant]
  9. LANTUS [Concomitant]
  10. FLONASE [Concomitant]
  11. ADVAIR [Concomitant]
  12. CHERATUSSIN AC [Concomitant]
  13. SPIRIVA [Concomitant]
  14. PRILOSEC [Concomitant]
  15. ALEVE [Concomitant]
  16. CARDURA [Concomitant]
  17. DOXAZOSIN MESILATE [Concomitant]
  18. ALDACTONE [Concomitant]
  19. AVAPRO [Concomitant]
  20. ZOCOR [Concomitant]
  21. GLUCOPHAGE [Concomitant]
  22. DUONEB [Concomitant]
  23. GLIPIZIDE [Concomitant]
  24. AMLODIPINE BESYLATE [Concomitant]
  25. FUROSEMIDE [Concomitant]
  26. METFORMIN HCL [Concomitant]
  27. OMEPRAZOLE [Concomitant]
  28. SPIRONOLACTONE [Concomitant]
  29. GLUCOSAMINE CHONDROITIN [Concomitant]
  30. OXYCODONE HCL - ACETAMINOPHEN [Concomitant]
  31. ALBUTEROL SULFATE HFA [Concomitant]
  32. ANDRODERM [Concomitant]
  33. PATANOL [Concomitant]

REACTIONS (3)
  - Dizziness [Unknown]
  - Nasal congestion [Unknown]
  - Oedema [Unknown]
